FAERS Safety Report 8897146 (Version 1)
Quarter: 2012Q4

REPORT INFORMATION
  Report Type: 
  Country: US (occurrence: US)
  Receive Date: 20121108
  Receipt Date: 20121108
  Transmission Date: 20130627
  Serious: No
  Sender: FDA-Public Use
  Company Number: US-AMGEN-USASP2012011922

PATIENT
  Age: 59 Year
  Sex: Female
  Weight: 81 kg

DRUGS (6)
  1. ENBREL [Suspect]
     Indication: PRODUCT USED FOR UNKNOWN INDICATION
     Dosage: 50 mg, qwk
  2. ARAVA [Concomitant]
     Dosage: 10 mg, UNK
  3. LISINOPRIL [Concomitant]
     Dosage: 20 mg, UNK
  4. ASA [Concomitant]
     Dosage: 81 mg, UNK
  5. FISH OIL [Concomitant]
  6. MULTIVITAMIN                       /00097801/ [Concomitant]

REACTIONS (1)
  - Influenza [Unknown]
